FAERS Safety Report 16458393 (Version 1)
Quarter: 2019Q2

REPORT INFORMATION
  Report Type: Spontaneous
  Country: CA (occurrence: CA)
  Receive Date: 20190620
  Receipt Date: 20190620
  Transmission Date: 20190711
  Serious: Yes (Life-Threatening, Other)
  Sender: FDA-Public Use
  Company Number: CA-PFIZER INC-2877175

PATIENT
  Age: 39 Year
  Sex: Female

DRUGS (4)
  1. NADOLOL. [Concomitant]
     Active Substance: NADOLOL
     Dosage: 60 MG, 2X/DAY
  2. EPINEPHRINE. [Suspect]
     Active Substance: EPINEPHRINE
     Indication: CARDIAC STRESS TEST
     Dosage: 0.05-0.2 MCG PER KG PER MIN
     Route: 041
  3. EPINEPHRINE. [Suspect]
     Active Substance: EPINEPHRINE
     Dosage: 0.05 UG/KG, UNK
     Route: 042
  4. EPINEPHRINE. [Suspect]
     Active Substance: EPINEPHRINE
     Dosage: 0.2 UG/KG, UNK
     Route: 042

REACTIONS (1)
  - Torsade de pointes [Recovered/Resolved]
